FAERS Safety Report 18599811 (Version 2)
Quarter: 2020Q4

REPORT INFORMATION
  Report Type: Spontaneous
  Country: US (occurrence: US)
  Receive Date: 20201210
  Receipt Date: 20201230
  Transmission Date: 20210114
  Serious: No
  Sender: FDA-Public Use
  Company Number: US-PFIZER INC-2020483808

PATIENT
  Age: 50 Year
  Sex: Female

DRUGS (2)
  1. IBRANCE [Suspect]
     Active Substance: PALBOCICLIB
     Dosage: 125 MG
     Dates: start: 20201203
  2. FASLODEX [Concomitant]
     Active Substance: FULVESTRANT

REACTIONS (7)
  - Back pain [Recovered/Resolved]
  - Dehydration [Unknown]
  - Arthralgia [Unknown]
  - Gait disturbance [Recovered/Resolved]
  - Pain [Recovered/Resolved]
  - Poor quality sleep [Unknown]
  - Anxiety [Unknown]

NARRATIVE: CASE EVENT DATE: 202012
